FAERS Safety Report 24035673 (Version 1)
Quarter: 2024Q3

REPORT INFORMATION
  Report Type: Spontaneous
  Country: US (occurrence: US)
  Receive Date: 20240701
  Receipt Date: 20240701
  Transmission Date: 20241016
  Serious: Yes (Death, Other)
  Sender: SPECGX
  Company Number: US-SPECGX-T202401395

PATIENT
  Age: 67 Year
  Sex: Male

DRUGS (2)
  1. POSACONAZOLE [Suspect]
     Active Substance: POSACONAZOLE
     Indication: Mucormycosis
     Dosage: UNK
     Route: 065
  2. AMPHOTERICIN B [Suspect]
     Active Substance: AMPHOTERICIN B
     Indication: Mucormycosis
     Dosage: UNK
     Route: 065

REACTIONS (10)
  - Death [Fatal]
  - Venipuncture [Unknown]
  - Thoracotomy [Unknown]
  - Lung lobectomy [Unknown]
  - Lung abscess [Unknown]
  - Respiratory failure [Unknown]
  - Pericardial effusion [Unknown]
  - Septic shock [Unknown]
  - Polycythaemia [Unknown]
  - Product use in unapproved indication [Unknown]
